FAERS Safety Report 15955689 (Version 1)
Quarter: 2019Q1

REPORT INFORMATION
  Report Type: Spontaneous
  Country: US (occurrence: US)
  Receive Date: 20190213
  Receipt Date: 20190213
  Transmission Date: 20190417
  Serious: No
  Sender: FDA-Public Use
  Company Number: US-ALKEM LABORATORIES LIMITED-US-ALKEM-2018-11476

PATIENT
  Age: 88 Year
  Sex: Female
  Weight: 41 kg

DRUGS (2)
  1. GABAPENTIN. [Suspect]
     Active Substance: GABAPENTIN
     Indication: NERVE INJURY
     Dosage: 300 UNK, (IN THE EVENING)
     Route: 065
  2. GABAPENTIN. [Suspect]
     Active Substance: GABAPENTIN
     Dosage: 100 MG, ( IN THE MORNING)
     Route: 065

REACTIONS (3)
  - Urinary hesitation [Unknown]
  - Vision blurred [Unknown]
  - Product use in unapproved indication [Unknown]
